FAERS Safety Report 9503715 (Version 1)
Quarter: 2013Q3

REPORT INFORMATION
  Report Type: Spontaneous
  Country: US (occurrence: US)
  Receive Date: 20130906
  Receipt Date: 20130906
  Transmission Date: 20140515
  Serious: Yes (Hospitalization)
  Sender: FDA-Public Use
  Company Number: US-PFIZER INC-2013257309

PATIENT
  Age: 83 Year
  Sex: Female
  Weight: 76.19 kg

DRUGS (12)
  1. LYRICA [Suspect]
     Indication: FIBROMYALGIA
     Dosage: 100 MG, 2X/DAY
     Route: 048
  2. XENAZINE [Concomitant]
     Dosage: UNK
  3. EVISTA [Concomitant]
     Dosage: UNK
  4. LEVOTHYROXINE [Concomitant]
     Dosage: UNK
  5. FLUTICASONE [Concomitant]
     Dosage: UNK
     Route: 045
  6. VENLAFAXINE [Concomitant]
     Dosage: UNK
  7. LASIX [Concomitant]
     Dosage: UNK
  8. PRILOSEC [Concomitant]
     Dosage: UNK
  9. NABUMETONE [Concomitant]
     Dosage: UNK
  10. FLONASE [Concomitant]
     Dosage: UNK
  11. METHADONE [Concomitant]
     Indication: PAIN
     Dosage: UNK
     Dates: end: 20130822
  12. NORCO [Concomitant]
     Indication: PAIN
     Dosage: UNK
     Dates: end: 20130822

REACTIONS (3)
  - Cardiac failure congestive [Unknown]
  - Cardiomegaly [Unknown]
  - Leukaemia [Unknown]
